FAERS Safety Report 8206991-5 (Version None)
Quarter: 2012Q1

REPORT INFORMATION
  Report Type: 
  Country: None (occurrence: None)
  Receive Date: 20120312
  Receipt Date: 20120302
  Transmission Date: 20120608
  Serious: Yes (Hospitalization, Congenital Anomaly, Other)
  Sender: FDA-Public Use
  Company Number: AUR-APL-2012-01280

PATIENT
  Age: 28 Day
  Sex: Female
  Weight: 3.29 kg

DRUGS (3)
  1. LEVOTHYROXINE SODIUM [Concomitant]
  2. METFORMIN HCL [Suspect]
     Indication: POLYCYSTIC OVARIES
     Dosage: 2000 MG (1000 MG, 2 IN 1 D), TRANSPLACENTAL
     Route: 064
     Dates: start: 20100803, end: 20110111
  3. DEKRISTOL (COLECALCIFEROL) [Concomitant]

REACTIONS (2)
  - MATERNAL DRUGS AFFECTING FOETUS [None]
  - OVARIAN CYST TORSION [None]
